FAERS Safety Report 23194446 (Version 1)
Quarter: 2023Q4

REPORT INFORMATION
  Report Type: Spontaneous
  Country: JP (occurrence: JP)
  Receive Date: 20231117
  Receipt Date: 20231117
  Transmission Date: 20240110
  Serious: Yes (Death, Hospitalization)
  Sender: FDA-Public Use
  Company Number: JP-AMGEN-JPNSP2023178664

PATIENT
  Age: 83 Year
  Sex: Female
  Weight: 40 kg

DRUGS (1)
  1. EVENITY [Suspect]
     Active Substance: ROMOSOZUMAB-AQQG
     Indication: Osteoporosis
     Dosage: 210 MILLIGRAM, QMO
     Route: 058
     Dates: start: 20210805, end: 20210805

REACTIONS (2)
  - Death [Fatal]
  - Cerebral infarction [Unknown]

NARRATIVE: CASE EVENT DATE: 20210801
